FAERS Safety Report 7227849-4 (Version None)
Quarter: 2011Q1

REPORT INFORMATION
  Report Type: 
  Country: None (occurrence: None)
  Receive Date: 20110114
  Receipt Date: 20110107
  Transmission Date: 20110831
  Serious: Yes (Hospitalization)
  Sender: FDA-Public Use
  Company Number: JP-JNJFOC-20110102682

PATIENT
  Sex: Male

DRUGS (6)
  1. TOPIRAMATE [Suspect]
     Indication: EPILEPSY
     Route: 048
  2. TEGRETOL [Concomitant]
     Indication: EPILEPSY
     Route: 048
  3. TOPIRAMATE [Suspect]
     Route: 048
  4. ONON [Concomitant]
     Route: 048
  5. SELENICA-R [Concomitant]
     Indication: EPILEPSY
     Route: 048
  6. SEROQUEL [Concomitant]
     Route: 048

REACTIONS (1)
  - STATUS EPILEPTICUS [None]
